FAERS Safety Report 12702347 (Version 1)
Quarter: 2016Q3

REPORT INFORMATION
  Report Type: Other
  Country: US (occurrence: US)
  Receive Date: 20160831
  Receipt Date: 20160831
  Transmission Date: 20161109
  Serious: No
  Sender: FDA-Public Use
  Company Number: US-TRIS PHARMA, INC.-1056909

PATIENT
  Age: 11 Month
  Sex: Female
  Weight: 9.55 kg

DRUGS (1)
  1. IBUPROFEN ORAL SUSPENSION DROPS [Suspect]
     Active Substance: IBUPROFEN
     Dates: start: 20150911, end: 20150911

REACTIONS (1)
  - Crying [None]

NARRATIVE: CASE EVENT DATE: 20150911
